FAERS Safety Report 8842242 (Version 1)
Quarter: 2012Q4

REPORT INFORMATION
  Report Type: Spontaneous
  Country: US (occurrence: None)
  Receive Date: 20121015
  Receipt Date: 20121015
  Transmission Date: 20130627
  Serious: Yes (Hospitalization)
  Sender: FDA-Public Use
  Company Number: None

PATIENT
  Age: 42 Year
  Sex: Female
  Weight: 83.46 kg

DRUGS (1)
  1. BUDEPRION XL [Suspect]
     Indication: DEPRESSION
     Route: 048
     Dates: start: 20111001, end: 20120320

REACTIONS (7)
  - Anxiety [None]
  - Tachycardia [None]
  - Blood pressure increased [None]
  - Sinus arrhythmia [None]
  - Drug ineffective [None]
  - Panic attack [None]
  - Product substitution issue [None]
